FAERS Safety Report 26101073 (Version 1)
Quarter: 2025Q4

REPORT INFORMATION
  Report Type: Spontaneous
  Country: US (occurrence: US)
  Receive Date: 20251128
  Receipt Date: 20251128
  Transmission Date: 20260118
  Serious: Yes (Other)
  Sender: AUROBINDO
  Company Number: US-AUROBINDO-AUR-APL-2025-051231

PATIENT
  Sex: Female

DRUGS (1)
  1. LEVETIRACETAM [Suspect]
     Active Substance: LEVETIRACETAM
     Indication: Product used for unknown indication
     Dosage: UNK
     Route: 065

REACTIONS (7)
  - Foreign body in throat [Unknown]
  - Aspiration [Unknown]
  - Adverse event [Unknown]
  - Off label use [Unknown]
  - Wrong technique in product usage process [Unknown]
  - Product use complaint [Unknown]
  - Product coating issue [Unknown]
